FAERS Safety Report 13166081 (Version 1)
Quarter: 2017Q1

REPORT INFORMATION
  Report Type: Spontaneous
  Country: US (occurrence: US)
  Receive Date: 20170127
  Receipt Date: 20170127
  Transmission Date: 20170428
  Serious: No
  Sender: FDA-Public Use
  Company Number: None

PATIENT
  Age: 46 Year
  Sex: Female

DRUGS (2)
  1. SUTENT [Suspect]
     Active Substance: SUNITINIB MALATE
     Indication: CONNECTIVE TISSUE NEOPLASM
     Route: 048
     Dates: start: 20170113, end: 20170120
  2. SUTENT [Suspect]
     Active Substance: SUNITINIB MALATE
     Indication: NEOPLASM
     Route: 048
     Dates: start: 20170113, end: 20170120

REACTIONS (3)
  - Flatulence [None]
  - Ulcer haemorrhage [None]
  - Constipation [None]

NARRATIVE: CASE EVENT DATE: 20170120
